FAERS Safety Report 5143872-8 (Version None)
Quarter: 2006Q4

REPORT INFORMATION
  Report Type: 
  Country: None (occurrence: None)
  Receive Date: 20061106
  Receipt Date: 20061027
  Transmission Date: 20070319
  Serious: Yes (Hospitalization)
  Sender: FDA-Public Use
  Company Number: PHEH2006US13463

PATIENT
  Age: 57 Year
  Sex: Female

DRUGS (4)
  1. FEMARA [Suspect]
     Indication: BREAST CANCER
     Dosage: 2.5 MG, QD
     Route: 048
     Dates: start: 20050901
  2. GLIPIZIDE [Concomitant]
  3. ZEBETA [Concomitant]
  4. PREVACID [Concomitant]

REACTIONS (6)
  - ARTHRALGIA [None]
  - BLOOD GLUCOSE FLUCTUATION [None]
  - BLOOD IRON DECREASED [None]
  - FLUID RETENTION [None]
  - HOT FLUSH [None]
  - MYALGIA [None]
